FAERS Safety Report 5055850-8 (Version None)
Quarter: 2006Q3

REPORT INFORMATION
  Report Type: 
  Country: None (occurrence: None)
  Receive Date: 20060718
  Receipt Date: 20060718
  Transmission Date: 20061208
  Serious: Yes (Hospitalization)
  Sender: FDA-Public Use
  Company Number: None

PATIENT
  Age: 77 Year
  Sex: Male
  Weight: 71.7 kg

DRUGS (1)
  1. CIPROFLOXACIN [Suspect]
     Indication: URINARY TRACT INFECTION
     Dosage: 500MG  BID  PO
     Route: 048

REACTIONS (4)
  - CLOSTRIDIAL INFECTION [None]
  - DEHYDRATION [None]
  - DISEASE RECURRENCE [None]
  - ILEUS [None]
